FAERS Safety Report 20077237 (Version 1)
Quarter: 2021Q4

REPORT INFORMATION
  Report Type: Report from Study
  Country: US (occurrence: US)
  Receive Date: 20211116
  Receipt Date: 20211116
  Transmission Date: 20220304
  Serious: Yes (Other)
  Sender: FDA-Public Use
  Company Number: US-MYLANLABS-2021M1002963

PATIENT
  Sex: Female
  Weight: 69 kg

DRUGS (1)
  1. GLATIRAMER ACETATE [Suspect]
     Active Substance: GLATIRAMER ACETATE
     Indication: Relapsing-remitting multiple sclerosis
     Dosage: 3 WEEKLY
     Route: 058

REACTIONS (8)
  - Neoplasm malignant [Unknown]
  - Gait disturbance [Unknown]
  - Abdominal hernia [Unknown]
  - Mobility decreased [Unknown]
  - Treatment noncompliance [Unknown]
  - Product dose omission issue [Unknown]
  - Irritable bowel syndrome [Unknown]
  - Weight increased [Unknown]
